FAERS Safety Report 6712912-4 (Version None)
Quarter: 2010Q2

REPORT INFORMATION
  Report Type: 
  Country: None (occurrence: None)
  Receive Date: 20100505
  Receipt Date: 20100505
  Transmission Date: 20101027
  Serious: No
  Sender: FDA-Public Use
  Company Number: None

PATIENT

DRUGS (2)
  1. MOTRIN [Suspect]
  2. BENADRYL [Concomitant]

REACTIONS (3)
  - PRODUCT QUALITY ISSUE [None]
  - PRURITUS [None]
  - SKIN INJURY [None]
